FAERS Safety Report 6770569-0 (Version None)
Quarter: 2010Q2

REPORT INFORMATION
  Report Type: 
  Country: None (occurrence: None)
  Receive Date: 20100615
  Receipt Date: 20100604
  Transmission Date: 20101027
  Serious: Yes (Hospitalization)
  Sender: FDA-Public Use
  Company Number: PHHY2010ES32477

PATIENT
  Age: 70 Year
  Sex: Female

DRUGS (4)
  1. ZOMETA [Suspect]
     Indication: MULTIPLE MYELOMA
     Dosage: UNK
     Route: 042
     Dates: start: 20100301, end: 20100413
  2. ZOMETA [Suspect]
     Dosage: UNK
  3. VELCADE [Suspect]
     Dosage: UNK
     Dates: start: 20100301, end: 20100413
  4. CALCIUM CARBONATE [Suspect]
     Dosage: UNK
     Dates: start: 20100301

REACTIONS (6)
  - DERMATITIS EXFOLIATIVE [None]
  - EPIDERMOLYSIS [None]
  - GENERALISED OEDEMA [None]
  - RENAL FAILURE ACUTE [None]
  - STAPHYLOCOCCAL SEPSIS [None]
  - URTICARIA [None]
